FAERS Safety Report 5977521-3 (Version None)
Quarter: 2008Q4

REPORT INFORMATION
  Report Type: 
  Country: None (occurrence: None)
  Receive Date: 20081201
  Receipt Date: 20081201
  Transmission Date: 20090506
  Serious: Yes (Other)
  Sender: FDA-Public Use
  Company Number: None

PATIENT
  Sex: Female
  Weight: 50.8029 kg

DRUGS (1)
  1. LEVAQUIN [Suspect]
     Indication: BRONCHITIS
     Dates: start: 20081102, end: 20081110

REACTIONS (7)
  - ABDOMINAL DISCOMFORT [None]
  - AGEUSIA [None]
  - BLOOD COUNT ABNORMAL [None]
  - FATIGUE [None]
  - HEPATIC ENZYME ABNORMAL [None]
  - HEPATOTOXICITY [None]
  - NAUSEA [None]
